FAERS Safety Report 21105894 (Version 1)
Quarter: 2022Q3

REPORT INFORMATION
  Report Type: Spontaneous
  Country: CN (occurrence: CN)
  Receive Date: 20220720
  Receipt Date: 20220720
  Transmission Date: 20221027
  Serious: Yes (Hospitalization, Other)
  Sender: FDA-Public Use
  Company Number: CN-GLAXOSMITHKLINE-CNCH2022GSK025323

PATIENT

DRUGS (3)
  1. LORATADINE [Suspect]
     Active Substance: LORATADINE
     Indication: Rhinitis allergic
     Dosage: UNK, (FOR THREE DAYS)
     Route: 048
     Dates: start: 20201025
  2. DACOMITINIB [Suspect]
     Active Substance: DACOMITINIB
     Indication: Lung carcinoma cell type unspecified recurrent
     Dosage: 45 MG, QD
     Route: 048
     Dates: start: 20200929
  3. METOPROLOL [Suspect]
     Active Substance: METOPROLOL
     Indication: Tachycardia
     Dosage: UNK
     Route: 048

REACTIONS (5)
  - Drug-induced liver injury [Recovered/Resolved]
  - Fatigue [Recovered/Resolved]
  - Chromaturia [Recovered/Resolved]
  - Pruritus [Recovered/Resolved]
  - Cholestasis [Recovered/Resolved]
